FAERS Safety Report 7433427-4 (Version None)
Quarter: 2011Q2

REPORT INFORMATION
  Report Type: 
  Country: None (occurrence: None)
  Receive Date: 20110422
  Receipt Date: 20110419
  Transmission Date: 20111010
  Serious: No
  Sender: FDA-Public Use
  Company Number: US-B.I. PHARMACEUTICALS,INC./RIDGEFIELD-2011-BP-11209BP

PATIENT
  Sex: Female

DRUGS (10)
  1. NADOLOL [Concomitant]
     Indication: ATRIAL FIBRILLATION
     Route: 048
     Dates: start: 20110304
  2. PRADAXA [Suspect]
     Indication: ATRIAL FIBRILLATION
     Dosage: 300 MG
     Route: 048
     Dates: start: 20110126
  3. VITAMIN D [Concomitant]
     Indication: PROPHYLAXIS
     Route: 048
  4. CALCIUM CITRATE [Concomitant]
     Indication: PROPHYLAXIS
     Route: 048
  5. VITAMIN-MINERAL COMPOUND TAB [Concomitant]
     Indication: EYE DISORDER
     Route: 048
     Dates: start: 20110418
  6. NEXIUM [Concomitant]
     Indication: GASTROOESOPHAGEAL REFLUX DISEASE
     Route: 048
     Dates: start: 20070101
  7. OMEGA 3 FISH [Concomitant]
     Indication: PROPHYLAXIS
     Route: 048
  8. MULTI-VITAMIN [Concomitant]
     Indication: PROPHYLAXIS
     Route: 048
  9. GLUCOSAMINE [Concomitant]
     Indication: PROPHYLAXIS
     Route: 048
  10. VITAMIN B-12 [Concomitant]
     Indication: PROPHYLAXIS
     Route: 060

REACTIONS (3)
  - VISION BLURRED [None]
  - HAEMORRHOIDS [None]
  - OCULAR HYPERAEMIA [None]
